FAERS Safety Report 18649931 (Version 2)
Quarter: 2020Q4

REPORT INFORMATION
  Report Type: Spontaneous
  Country: ES (occurrence: ES)
  Receive Date: 20201222
  Receipt Date: 20201222
  Transmission Date: 20210114
  Serious: Yes (Life-Threatening, Hospitalization, Other)
  Sender: FDA-Public Use
  Company Number: ES-PFIZER INC-2020496102

PATIENT
  Age: 67 Year
  Sex: Male

DRUGS (8)
  1. CYTARABINE. [Suspect]
     Active Substance: CYTARABINE
     Indication: BLAST CELL CRISIS
     Dosage: 2 G/M2, CYCLIC (DAYS 1 TO 4)
     Route: 042
  2. FLUDARABINE [Suspect]
     Active Substance: FLUDARABINE PHOSPHATE
     Indication: BLAST CELL CRISIS
     Dosage: 30 MG/M2, FREQ:2 {CYCLICAL};DAY 1 TO 4
     Route: 042
  3. HYDREA [Suspect]
     Active Substance: HYDROXYUREA
     Indication: BLAST CELL CRISIS
     Dosage: UNK
  4. IDARUBICIN HCL [Suspect]
     Active Substance: IDARUBICIN HYDROCHLORIDE
     Indication: BLAST CELL CRISIS
     Dosage: 10 MG/M2, CYCLIC (10 MG/M2, FREQ:2 {CYCLICAL};DAYS 1 TO 3)
     Route: 042
  5. DASATINIB. [Suspect]
     Active Substance: DASATINIB
     Indication: BLAST CRISIS IN MYELOGENOUS LEUKAEMIA
     Dosage: 140 MG, CYCLIC (140 MG THEREAFTER TEMPORARY WITHDRAWAL OF DASATINIB WITH SUBSEQUENT DOSE ESCALATION
  6. GRANULOCYTE COLONY STIMULATING FACTOR [Concomitant]
     Active Substance: GRANULOCYTE COLONY-STIMULATING FACTOR NOS
     Indication: BLAST CRISIS IN MYELOGENOUS LEUKAEMIA
  7. GRANULOCYTE COLONY STIMULATING FACTOR [Concomitant]
     Active Substance: GRANULOCYTE COLONY-STIMULATING FACTOR NOS
     Indication: PROPHYLAXIS
     Dosage: 300 UG/M2, ON DAYS 1-5
     Route: 058
  8. DASATINIB. [Suspect]
     Active Substance: DASATINIB
     Indication: BLAST CELL CRISIS
     Dosage: 100 MG, FREQ:2 {CYCLICAL};INITIALLY

REACTIONS (8)
  - Neutropenia [Recovered/Resolved]
  - Staphylococcal infection [Recovered/Resolved]
  - Pyrexia [Recovered/Resolved]
  - Thrombocytopenia [Recovered/Resolved]
  - Bronchopulmonary aspergillosis [Recovered/Resolved]
  - Cytomegalovirus infection [Recovered/Resolved]
  - Off label use [Unknown]
  - Cytomegalovirus infection reactivation [Recovered/Resolved]
